FAERS Safety Report 4947864-0 (Version None)
Quarter: 2006Q1

REPORT INFORMATION
  Report Type: 
  Country: None (occurrence: None)
  Receive Date: 20060320
  Receipt Date: 20060307
  Transmission Date: 20060701
  Serious: Yes (Hospitalization)
  Sender: FDA-Public Use
  Company Number: US-AMGEN-US169145

PATIENT
  Sex: Male
  Weight: 97.2 kg

DRUGS (16)
  1. ARANESP [Suspect]
     Indication: RENAL FAILURE CHRONIC
     Dates: start: 20031022
  2. VENOFER [Suspect]
     Route: 042
  3. PREDNISONE [Concomitant]
  4. GLIPIZIDE [Concomitant]
  5. FUROSEMIDE [Concomitant]
  6. LEVOXYL [Concomitant]
  7. CELEXA [Concomitant]
  8. MELATONIN [Concomitant]
  9. AVODART [Concomitant]
     Dates: start: 20050501
  10. FLOMAX [Concomitant]
     Dates: start: 20040401
  11. ZOCOR [Concomitant]
  12. POTASSIUM CHLORIDE [Concomitant]
     Dates: start: 20051101
  13. PROTONIX [Concomitant]
     Dates: start: 20051001
  14. MULTIVITAMIN [Concomitant]
  15. COREG [Concomitant]
     Dates: start: 20051001
  16. OXYGEN [Concomitant]
     Dates: start: 20051001

REACTIONS (6)
  - CARDIAC FAILURE CONGESTIVE [None]
  - CELLULITIS [None]
  - GASTROINTESTINAL ARTERIOVENOUS MALFORMATION [None]
  - GASTROINTESTINAL HAEMORRHAGE [None]
  - STASIS DERMATITIS [None]
  - THERAPEUTIC RESPONSE DECREASED [None]
